FAERS Safety Report 4390475-9 (Version None)
Quarter: 2004Q2

REPORT INFORMATION
  Report Type: 
  Country: None (occurrence: None)
  Receive Date: 20040630
  Receipt Date: 20040616
  Transmission Date: 20050107
  Serious: Yes (Death)
  Sender: FDA-Public Use
  Company Number: 04P-163-0263707-00

PATIENT
  Age: 61 Year
  Sex: Female
  Weight: 67 kg

DRUGS (9)
  1. HUMIRA [Suspect]
     Indication: RHEUMATOID ARTHRITIS
     Dosage: 40 MG, 1 IN 2 WK, SUBCUTANEOUS
     Route: 058
     Dates: start: 20031202, end: 20040601
  2. PROPACET 100 [Concomitant]
  3. CALCIUM [Concomitant]
  4. CYANOCOBALAMIN [Concomitant]
  5. ROFECOXIB [Concomitant]
  6. PREDNISONE [Concomitant]
  7. LEFLUNOMIDE [Concomitant]
  8. IRON DEXTRAN [Concomitant]
  9. RAMIPRIL [Concomitant]

REACTIONS (7)
  - ACUTE MYOCARDIAL INFARCTION [None]
  - ATHEROSCLEROSIS [None]
  - BACTERIAL INFECTION [None]
  - HEPATIC CONGESTION [None]
  - NEPHROSCLEROSIS [None]
  - PNEUMONIA [None]
  - SPLEEN CONGESTION [None]
